FAERS Safety Report 7751856-6 (Version None)
Quarter: 2011Q3

REPORT INFORMATION
  Report Type: 
  Country: None (occurrence: None)
  Receive Date: 20110914
  Receipt Date: 20110914
  Transmission Date: 20111222
  Serious: Yes (Hospitalization)
  Sender: FDA-Public Use
  Company Number: None

PATIENT
  Age: 65 Year
  Sex: Male
  Weight: 83.8 kg

DRUGS (1)
  1. METOPROLOL TARTRATE [Suspect]
     Indication: HYPERTENSION
     Dosage: 25 MG BID PO
     Route: 048

REACTIONS (7)
  - BRADYCARDIA [None]
  - CHEST DISCOMFORT [None]
  - PRESYNCOPE [None]
  - VISION BLURRED [None]
  - PARAESTHESIA [None]
  - CHEST PAIN [None]
  - DIZZINESS [None]
